FAERS Safety Report 5128261-4 (Version None)
Quarter: 2006Q4

REPORT INFORMATION
  Report Type: 
  Country: None (occurrence: None)
  Receive Date: 20061011
  Receipt Date: 20060927
  Transmission Date: 20070319
  Serious: Yes (Hospitalization)
  Sender: FDA-Public Use
  Company Number: US200601002094

PATIENT
  Age: 46 Year
  Sex: Female
  Weight: 60.8 kg

DRUGS (2)
  1. ZYPREXA [Suspect]
     Indication: INSOMNIA
     Dosage: 5 MG, UNK, ORAL
     Route: 048
     Dates: start: 19990101, end: 20051101
  2. LITHIUM CARBONATE [Concomitant]

REACTIONS (8)
  - BLOOD CHOLESTEROL ABNORMAL [None]
  - BLOOD TRIGLYCERIDES INCREASED [None]
  - DIABETES MELLITUS NON-INSULIN-DEPENDENT [None]
  - HYPERTENSION [None]
  - INSULIN RESISTANCE [None]
  - METABOLIC DISORDER [None]
  - RETINAL DETACHMENT [None]
  - WEIGHT INCREASED [None]
